FAERS Safety Report 5301880-8 (Version None)
Quarter: 2007Q2

REPORT INFORMATION
  Report Type: 
  Country: None (occurrence: None)
  Receive Date: 20070419
  Receipt Date: 20070407
  Transmission Date: 20071010
  Serious: Yes (Hospitalization)
  Sender: FDA-Public Use
  Company Number: IT-ROCHE-492454

PATIENT
  Age: 20 Year
  Sex: Female

DRUGS (1)
  1. ROCEPHIN [Suspect]
     Indication: ANGINA PECTORIS
     Dosage: FORM REPORTED AS VIAL.
     Route: 030
     Dates: start: 20070315, end: 20070315

REACTIONS (2)
  - ANGIOEDEMA [None]
  - URTICARIA [None]
